FAERS Safety Report 14079018 (Version 3)
Quarter: 2018Q1

REPORT INFORMATION
  Report Type: Spontaneous
  Country: US (occurrence: US)
  Receive Date: 20171012
  Receipt Date: 20180329
  Transmission Date: 20180508
  Serious: No
  Sender: FDA-Public Use
  Company Number: US-LUNDBECK-DKLU2037834

PATIENT
  Sex: Female

DRUGS (4)
  1. NORTHERA [Suspect]
     Active Substance: DROXIDOPA
     Route: 048
  2. NORTHERA [Suspect]
     Active Substance: DROXIDOPA
     Route: 065
     Dates: start: 20171009
  3. NORTHERA [Suspect]
     Active Substance: DROXIDOPA
     Indication: BLOOD PRESSURE INCREASED
     Dosage: SCHEDULE B (TITRATING)
     Route: 048
     Dates: start: 20170923, end: 20170928
  4. NORTHERA [Suspect]
     Active Substance: DROXIDOPA
     Route: 065
     Dates: end: 20170928

REACTIONS (4)
  - Blood pressure orthostatic decreased [Unknown]
  - Therapeutic response decreased [Unknown]
  - Dizziness postural [Unknown]
  - Drug ineffective [Unknown]
